FAERS Safety Report 5416829-7 (Version None)
Quarter: 2007Q3

REPORT INFORMATION
  Report Type: 
  Country: None (occurrence: None)
  Receive Date: 20070816
  Receipt Date: 20070814
  Transmission Date: 20080115
  Serious: Yes (Hospitalization)
  Sender: FDA-Public Use
  Company Number: US-BRISTOL-MYERS SQUIBB COMPANY-13877790

PATIENT
  Age: 52 Year
  Sex: Male
  Weight: 128 kg

DRUGS (9)
  1. CISPLATIN [Suspect]
     Indication: NEOPLASM MALIGNANT
     Route: 042
     Dates: start: 20070718
  2. ERBITUX [Suspect]
     Indication: NEOPLASM MALIGNANT
     Route: 042
     Dates: start: 20070516
  3. RADIATION THERAPY [Suspect]
     Indication: NEOPLASM MALIGNANT
     Dates: start: 20070710
  4. ATENOLOL [Concomitant]
  5. OXYCODONE HCL [Concomitant]
  6. COLACE [Concomitant]
  7. PROTONIX [Concomitant]
  8. AQUAPHOR [Concomitant]
  9. AMBIEN [Concomitant]

REACTIONS (2)
  - PYREXIA [None]
  - STOMATITIS [None]
